FAERS Safety Report 5602123-8 (Version None)
Quarter: 2008Q1

REPORT INFORMATION
  Report Type: 
  Country: None (occurrence: None)
  Receive Date: 20080125
  Receipt Date: 20080115
  Transmission Date: 20080703
  Serious: Yes (Hospitalization)
  Sender: FDA-Public Use
  Company Number: PHHY2008US00836

PATIENT
  Age: 60 Year
  Sex: Male
  Weight: 91 kg

DRUGS (5)
  1. PROGRAF [Suspect]
     Indication: STEROID THERAPY
     Dosage: 2 MG, BID
     Dates: start: 20071113, end: 20071126
  2. PROGRAF [Suspect]
     Dosage: 1 MG, BID
  3. LANTUS [Concomitant]
     Dosage: 40 UNITS
  4. DIURETICS [Concomitant]
  5. MYCOPHENOLIC ACID [Suspect]
     Indication: RENAL TRANSPLANT
     Dosage: 720 MG, BID
     Route: 048
     Dates: start: 20071113, end: 20071220

REACTIONS (9)
  - BIOPSY KIDNEY [None]
  - BLOOD CREATININE INCREASED [None]
  - COMPLICATIONS OF TRANSPLANTED KIDNEY [None]
  - DEHYDRATION [None]
  - DIABETIC DIET [None]
  - IMMUNOSUPPRESSANT DRUG LEVEL INCREASED [None]
  - NEPHROPATHY TOXIC [None]
  - VASOCONSTRICTION [None]
  - WOUND SECRETION [None]
